FAERS Safety Report 15075312 (Version 1)
Quarter: 2018Q2

REPORT INFORMATION
  Report Type: Spontaneous
  Country: US (occurrence: US)
  Receive Date: 20180627
  Receipt Date: 20180627
  Transmission Date: 20180711
  Serious: No
  Sender: FDA-Public Use
  Company Number: US-SAOL THERAPEUTICS-2018SAO00314

PATIENT
  Sex: Male

DRUGS (4)
  1. BACLOFEN. [Suspect]
     Active Substance: BACLOFEN
     Dosage: 24 ?G, \DAY
     Route: 037
  2. BACLOFEN. [Suspect]
     Active Substance: BACLOFEN
     Dosage: 29 ?G, \DAY
     Route: 037
  3. BACLOFEN. [Suspect]
     Active Substance: BACLOFEN
     Dosage: 50 ?G, \DAY TRIAL DOSE
     Route: 037
     Dates: start: 20171107
  4. BACLOFEN. [Suspect]
     Active Substance: BACLOFEN
     Dosage: 24 ?G, \DAY
     Route: 037
     Dates: start: 20180301

REACTIONS (6)
  - Therapy non-responder [Unknown]
  - Hypotonia [Unknown]
  - Nausea [Unknown]
  - Vomiting [Unknown]
  - Dizziness [Unknown]
  - Areflexia [Unknown]

NARRATIVE: CASE EVENT DATE: 20180130
